FAERS Safety Report 9245355 (Version 1)
Quarter: 2013Q1

REPORT INFORMATION
  Report Type: Spontaneous
  Country: US (occurrence: None)
  Receive Date: 20121130
  Receipt Date: 20121130
  Transmission Date: 20140127
  Serious: Yes (Hospitalization)
  Sender: FDA-Public Use
  Company Number: 355602

PATIENT
  Age: 42 Year
  Sex: Female

DRUGS (7)
  1. NOVOLOG [Suspect]
     Indication: TYPE 1 DIABETES MELLITUS
     Dates: start: 20120708, end: 20120709
  2. LEVEMIR (INSULIN DETEMIR) SOLUTION FOR INJECTION [Concomitant]
  3. LEVOTHYROXINE [Concomitant]
  4. ADDERALL (AMFETAMINE ASPARTATE, AMFETAINE SULFATE, DEXAMETHAMINE SACCHARATE, DEXAMFETAMINE SULFATE) [Concomitant]
  5. LISINOPRIL [Concomitant]
  6. PANTOPRAZOLE [Concomitant]
  7. AMBIEN (ZOLPIDEM TARTRATE) [Concomitant]

REACTIONS (2)
  - Anaphylactic reaction [None]
  - Migraine [None]
